FAERS Safety Report 24823641 (Version 1)
Quarter: 2025Q1

REPORT INFORMATION
  Report Type: Spontaneous
  Country: US (occurrence: US)
  Receive Date: 20250109
  Receipt Date: 20250109
  Transmission Date: 20250408
  Serious: Yes (Other)
  Sender: HETERO
  Company Number: US-AMAROX PHARMA-HET2024US05156

PATIENT
  Age: 85 Year
  Sex: Female

DRUGS (1)
  1. ATORVASTATIN [Suspect]
     Active Substance: ATORVASTATIN
     Indication: Cerebrovascular accident
     Route: 065

REACTIONS (1)
  - Autoimmune hepatitis [Recovering/Resolving]
